FAERS Safety Report 6544364-1 (Version None)
Quarter: 2010Q1

REPORT INFORMATION
  Report Type: 
  Country: None (occurrence: None)
  Receive Date: 20100120
  Receipt Date: 20100120
  Transmission Date: 20100710
  Serious: No
  Sender: FDA-Public Use
  Company Number: None

PATIENT
  Age: 40 Year
  Sex: Male

DRUGS (1)
  1. SUMATRIPTAN [Suspect]
     Dosage: .6 MG ONCE SQ
     Route: 058
     Dates: start: 20091106, end: 20091106

REACTIONS (2)
  - CHEST DISCOMFORT [None]
  - CHEST PAIN [None]
